FAERS Safety Report 9206017 (Version 1)
Quarter: 2013Q2

REPORT INFORMATION
  Report Type: Spontaneous
  Country: US (occurrence: US)
  Receive Date: 20130403
  Receipt Date: 20130403
  Transmission Date: 20140414
  Serious: Yes (Hospitalization)
  Sender: FDA-Public Use
  Company Number: US-JNJFOC-20130316683

PATIENT
  Age: 52 Year
  Sex: Male

DRUGS (2)
  1. RIVAROXABAN [Suspect]
     Indication: ATRIAL FIBRILLATION
     Route: 048
  2. RIVAROXABAN [Suspect]
     Indication: ANTICOAGULANT THERAPY
     Route: 048

REACTIONS (2)
  - Ischaemic stroke [Unknown]
  - Drug ineffective [Unknown]
